FAERS Safety Report 6261919-2 (Version None)
Quarter: 2009Q3

REPORT INFORMATION
  Report Type: 
  Country: None (occurrence: None)
  Receive Date: 20090709
  Receipt Date: 20090630
  Transmission Date: 20100115
  Serious: Yes (Hospitalization, Other)
  Sender: FDA-Public Use
  Company Number: B0582661A

PATIENT
  Age: 69 Year
  Sex: Male

DRUGS (1)
  1. DIGOXIN [Suspect]
     Indication: DRUG USE FOR UNKNOWN INDICATION
     Dosage: 20TAB PER DAY
     Route: 048

REACTIONS (2)
  - SUICIDAL IDEATION [None]
  - THERAPEUTIC AGENT TOXICITY [None]
